FAERS Safety Report 24109944 (Version 1)
Quarter: 2024Q3

REPORT INFORMATION
  Report Type: Report from Study
  Country: PL (occurrence: PL)
  Receive Date: 20240718
  Receipt Date: 20240718
  Transmission Date: 20241016
  Serious: Yes (Death)
  Sender: PFIZER
  Company Number: PL-ROCHE-2983115

PATIENT
  Age: 73 Year
  Sex: Male
  Weight: 78 kg

DRUGS (25)
  1. CARBOPLATIN [Suspect]
     Active Substance: CARBOPLATIN
     Indication: Small cell lung cancer extensive stage
     Dosage: 419 MG
     Route: 065
     Dates: start: 20210722
  2. ETOPOSIDE [Suspect]
     Active Substance: ETOPOSIDE
     Indication: Small cell lung cancer extensive stage
     Dosage: 180 MG
     Route: 042
     Dates: start: 20210722
  3. ATEZOLIZUMAB [Suspect]
     Active Substance: ATEZOLIZUMAB
     Indication: Small cell lung cancer extensive stage
     Dosage: START DATE OF MOST RECENT DOSE OF STUDY DRUG PRIOR TO AE 24/NOV/2021
     Route: 042
     Dates: start: 20210722
  4. ATEZOLIZUMAB [Suspect]
     Active Substance: ATEZOLIZUMAB
     Dosage: START DATE OF MOST RECENT DOSE OF STUDY DRUG PRIOR TO AE 24/NOV/2021
     Route: 041
     Dates: start: 20210722
  5. AMLODIPINE BESYLATE [Concomitant]
     Active Substance: AMLODIPINE BESYLATE
     Indication: Product used for unknown indication
     Dosage: UNK, 1X/DAY
  6. AMLODIPINE BESYLATE [Concomitant]
     Active Substance: AMLODIPINE BESYLATE
     Dosage: UNK, QD
     Route: 065
  7. ATEZOLIZUMAB [Concomitant]
     Active Substance: ATEZOLIZUMAB
     Indication: Product used for unknown indication
     Route: 065
  8. CLEMASTINUM [CLEMASTINE] [Concomitant]
     Dosage: UNK, 1X/DAY
     Dates: start: 20211215
  9. MOMETASONE FUROATE [Concomitant]
     Active Substance: MOMETASONE FUROATE
     Indication: Product used for unknown indication
     Dosage: UNK UNK, QD
     Route: 065
     Dates: start: 20211215
  10. PANTOPRAZOLE SODIUM [Concomitant]
     Active Substance: PANTOPRAZOLE SODIUM
     Dosage: UNK, 1X/DAY
  11. HYPLAFIN [Concomitant]
     Indication: Product used for unknown indication
     Dosage: UNK, 1X/DAY
  12. HYPLAFIN [Concomitant]
     Dosage: UNK
     Route: 065
  13. LACTULOSE [Concomitant]
     Active Substance: LACTULOSE
     Dosage: UNK
  14. RAMIPRIL [Concomitant]
     Active Substance: RAMIPRIL
     Indication: Product used for unknown indication
     Dosage: UNK, 1X/DAY
  15. RAMIPRIL [Concomitant]
     Active Substance: RAMIPRIL
     Dosage: UNK UNK, QD
     Route: 065
  16. TEGRETOL [Concomitant]
     Active Substance: CARBAMAZEPINE
     Indication: Product used for unknown indication
     Dosage: UNK, 2X/DAY
  17. TEGRETOL [Concomitant]
     Active Substance: CARBAMAZEPINE
     Dosage: UNK
     Route: 065
  18. ZOFRAN [Concomitant]
     Active Substance: ONDANSETRON HYDROCHLORIDE
     Indication: Prophylaxis
     Dosage: UNK
  19. CLARITHROMYCIN [Concomitant]
     Active Substance: CLARITHROMYCIN
     Dosage: UNK, 2X/DAY
     Dates: start: 20220916, end: 20220926
  20. LAKCID [LACTOBACILLUS RHAMNOSUS] [Concomitant]
     Dosage: UNK, 2X/DAY
     Dates: start: 20220916, end: 20220926
  21. PREDNISONE [Concomitant]
     Active Substance: PREDNISONE
     Dosage: UNK, 2X/DAY
     Dates: start: 20220916, end: 20220926
  22. CYCLOPHOSPHAMIDE [Concomitant]
     Active Substance: CYCLOPHOSPHAMIDE
     Dosage: UNK
     Dates: start: 20231130, end: 20231130
  23. VINCRISTINE [Concomitant]
     Active Substance: VINCRISTINE
     Dosage: UNK
     Dates: start: 20231130, end: 20231130
  24. MEGESTROL ACETATE [Concomitant]
     Active Substance: MEGESTROL ACETATE
     Indication: Product used for unknown indication
     Dosage: QD
     Route: 065
     Dates: start: 202311
  25. DOXORUBICIN [Concomitant]
     Active Substance: DOXORUBICIN
     Dosage: UNK
     Dates: start: 20231130, end: 20231130

REACTIONS (2)
  - Death [Fatal]
  - Rash pruritic [Not Recovered/Not Resolved]

NARRATIVE: CASE EVENT DATE: 20211215
